FAERS Safety Report 4749133-0 (Version None)
Quarter: 2005Q3

REPORT INFORMATION
  Report Type: 
  Country: None (occurrence: None)
  Receive Date: 20050817
  Receipt Date: 20050802
  Transmission Date: 20060218
  Serious: Yes (Death, Life-Threatening, Hospitalization)
  Sender: FDA-Public Use
  Company Number: 2005S1000236

PATIENT
  Age: 76 Year
  Sex: Male

DRUGS (3)
  1. ACITRETIN (ACITRETIN) [Suspect]
     Indication: PITYRIASIS RUBRA PILARIS
     Dosage: 50 MG; PO
     Route: 048
  2. CYCLOSPORINE [Suspect]
     Indication: PITYRIASIS RUBRA PILARIS
     Dosage: 2.5 MG/KG;QD;PO
     Route: 048
  3. METHOTREXATE [Suspect]
     Indication: PITYRIASIS RUBRA PILARIS
     Dosage: 10 MG;QW;PO
     Route: 048

REACTIONS (11)
  - ALANINE AMINOTRANSFERASE INCREASED [None]
  - BILIARY DILATATION [None]
  - BLOOD ALKALINE PHOSPHATASE INCREASED [None]
  - BLOOD BILIRUBIN INCREASED [None]
  - CHOLELITHIASIS [None]
  - GENERAL PHYSICAL HEALTH DETERIORATION [None]
  - JAUNDICE [None]
  - METASTASES TO BONE [None]
  - RENAL CELL CARCINOMA STAGE UNSPECIFIED [None]
  - SKIN BURNING SENSATION [None]
  - TREMOR [None]
